FAERS Safety Report 12461621 (Version 1)
Quarter: 2016Q2

REPORT INFORMATION
  Report Type: Spontaneous
  Country: FR (occurrence: FR)
  Receive Date: 20160613
  Receipt Date: 20160613
  Transmission Date: 20160815
  Serious: Yes (Life-Threatening)
  Sender: FDA-Public Use
  Company Number: PHHY2016FR077446

PATIENT
  Age: 44 Year
  Sex: Male

DRUGS (5)
  1. PARACETAMOL+CODEINE SANDOZ [Suspect]
     Active Substance: ACETAMINOPHEN\CODEINE PHOSPHATE
     Indication: PRODUCT USED FOR UNKNOWN INDICATION
     Dosage: 16 DF, ONCE/SINGLE
     Route: 048
     Dates: start: 20140922, end: 20140922
  2. SERESTA [Suspect]
     Active Substance: OXAZEPAM
     Dosage: 300 MG, ONCE/SINGLE
     Route: 048
     Dates: start: 20140922, end: 20140922
  3. PARACETAMOL SANDOZ [Suspect]
     Active Substance: ACETAMINOPHEN
     Indication: PRODUCT USED FOR UNKNOWN INDICATION
     Dosage: 8 G, ONCE/SINGLE
     Route: 048
     Dates: start: 20140922, end: 20140922
  4. TRAMADOL HYDROCHLORIDE. [Suspect]
     Active Substance: TRAMADOL HYDROCHLORIDE
     Indication: PRODUCT USED FOR UNKNOWN INDICATION
     Dosage: 20 DF, ONCE/SINGLE
     Route: 048
     Dates: start: 20140922, end: 20140922
  5. NAPROXEN. [Suspect]
     Active Substance: NAPROXEN
     Indication: PRODUCT USED FOR UNKNOWN INDICATION
     Dosage: 16 DF, ONCE/SINGLE
     Route: 048
     Dates: start: 20140922, end: 20140922

REACTIONS (10)
  - Cholestasis [Recovering/Resolving]
  - Bradypnoea [Recovering/Resolving]
  - Sepsis [Unknown]
  - Multiple organ dysfunction syndrome [Recovering/Resolving]
  - Hepatocellular injury [Recovering/Resolving]
  - Miosis [Recovering/Resolving]
  - Acute kidney injury [Recovering/Resolving]
  - Pneumonia aspiration [Unknown]
  - Somnolence [Recovering/Resolving]
  - Toxicity to various agents [Unknown]

NARRATIVE: CASE EVENT DATE: 20140922
